FAERS Safety Report 9705736 (Version 1)
Quarter: 2013Q4

REPORT INFORMATION
  Report Type: Spontaneous
  Country: US (occurrence: US)
  Receive Date: 20131122
  Receipt Date: 20131122
  Transmission Date: 20140711
  Serious: No
  Sender: FDA-Public Use
  Company Number: US-GILEAD-2008-0017812

PATIENT
  Sex: Female
  Weight: 70.31 kg

DRUGS (18)
  1. LETAIRIS [Suspect]
     Indication: PULMONARY ARTERIAL HYPERTENSION
     Route: 048
     Dates: start: 20080627
  2. CALTRATE +D [Concomitant]
     Route: 048
  3. ZOCOR [Concomitant]
     Route: 048
  4. TYLENOL [Concomitant]
     Route: 048
  5. ALBUTEROL INHALER [Concomitant]
     Route: 055
  6. ALBUTEROL SOLUTION [Concomitant]
     Route: 055
  7. LISINOPRIL [Concomitant]
     Route: 048
  8. ASPIRIN [Concomitant]
     Route: 048
  9. ADVAIR [Concomitant]
     Route: 055
  10. NIFEDIPINE ER [Concomitant]
     Route: 048
  11. OCEAN NOSE SPRAY [Concomitant]
     Route: 045
  12. SPIRIVA [Concomitant]
     Route: 055
  13. CARI-OMEGA 3 [Concomitant]
     Route: 048
  14. MULTIVITAMIN [Concomitant]
     Route: 048
  15. PREVACID [Concomitant]
     Route: 048
  16. AMITRIPTYLINE [Concomitant]
     Route: 048
  17. VITAMIN B-12 [Concomitant]
  18. HIDEAWAY OXYGEN SYSTEM [Concomitant]
     Route: 045

REACTIONS (3)
  - Sinusitis [None]
  - Nasal discomfort [None]
  - Oedema [None]
